FAERS Safety Report 6060637-3 (Version None)
Quarter: 2009Q1

REPORT INFORMATION
  Report Type: 
  Country: None (occurrence: None)
  Receive Date: 20090130
  Receipt Date: 20090130
  Transmission Date: 20090719
  Serious: Yes (Hospitalization)
  Sender: FDA-Public Use
  Company Number: None

PATIENT
  Age: 39 Year
  Sex: Female
  Weight: 50.8029 kg

DRUGS (2)
  1. LEVAQUIN [Suspect]
     Indication: BRONCHITIS
     Dosage: 1 DAILY PO
     Route: 048
     Dates: start: 20090126, end: 20090129
  2. LEVAQUIN [Suspect]
     Indication: EAR INFECTION
     Dosage: 1 DAILY PO
     Route: 048
     Dates: start: 20090126, end: 20090129

REACTIONS (10)
  - AGITATION [None]
  - DRUG TOXICITY [None]
  - GAIT DISTURBANCE [None]
  - HEADACHE [None]
  - INSOMNIA [None]
  - MOTOR DYSFUNCTION [None]
  - MUSCLE CONTRACTIONS INVOLUNTARY [None]
  - MUSCLE SPASMS [None]
  - MUSCLE TWITCHING [None]
  - TREMOR [None]
